FAERS Safety Report 5843690-9 (Version None)
Quarter: 2008Q3

REPORT INFORMATION
  Report Type: 
  Country: None (occurrence: None)
  Receive Date: 20080808
  Receipt Date: 20080729
  Transmission Date: 20090109
  Serious: Yes (Life-Threatening, Hospitalization, Other)
  Sender: FDA-Public Use
  Company Number: 2008AP001838

PATIENT
  Age: 19 Year
  Sex: Male

DRUGS (7)
  1. DILTIAZEM HYDROCHLORIDE [Suspect]
     Dosage: 3.6 GM;, 3.6 GM;
  2. ATENOLOL [Suspect]
     Dosage: 0.5 GM;, 0.5 GM;
  3. VENLAFAXINE HCL [Suspect]
     Dosage: 4.2 GM;, 4.2 GM;
  4. IRBESARTAN [Suspect]
     Dosage: 1.5 GM;, 1.5 GM;
  5. HYDROCHLOROTHIAZIDE [Suspect]
     Dosage: 0.125 GM;, 0.125 GM;
  6. CLOZAPINE [Suspect]
     Dosage: 3 GM;, 3 GM;
  7. SERTRALINE HYDROCHLORIDE [Suspect]
     Dosage: 0.6 GM;, 0.6 GM;

REACTIONS (12)
  - DRUG INEFFECTIVE [None]
  - GENERAL PHYSICAL HEALTH DETERIORATION [None]
  - GLASGOW COMA SCALE ABNORMAL [None]
  - HAEMODIALYSIS [None]
  - HYPOTENSION [None]
  - HYPOTHERMIA [None]
  - MULTIPLE DRUG OVERDOSE INTENTIONAL [None]
  - NODAL RHYTHM [None]
  - SEDATION [None]
  - SINUS BRADYCARDIA [None]
  - THROMBOCYTOPENIA [None]
  - WRONG DRUG ADMINISTERED [None]
